FAERS Safety Report 8737904 (Version 5)
Quarter: 2016Q2

REPORT INFORMATION
  Report Type: Spontaneous
  Country: US (occurrence: US)
  Receive Date: 20120823
  Receipt Date: 20160428
  Transmission Date: 20160815
  Serious: Yes (Other)
  Sender: FDA-Public Use
  Company Number: US-MERCK-1208USA003278

PATIENT
  Sex: Female
  Weight: 68.27 kg

DRUGS (4)
  1. ALENDRONATE SODIUM. [Suspect]
     Active Substance: ALENDRONATE SODIUM
     Indication: OSTEOPOROSIS
     Dosage: 70 MG, QW
     Route: 048
     Dates: start: 20071127, end: 20081027
  2. FOSAMAX [Suspect]
     Active Substance: ALENDRONATE SODIUM
     Indication: OSTEOPOROSIS
     Dosage: 70 MG, QW
     Route: 048
     Dates: start: 20010929, end: 20080303
  3. FOSAMAX [Suspect]
     Active Substance: ALENDRONATE SODIUM
     Indication: OSTEOPENIA
  4. BONIVA [Suspect]
     Active Substance: IBANDRONATE SODIUM
     Indication: OSTEOPENIA
     Dosage: 150 MG, UNK
     Dates: start: 20081220, end: 201008

REACTIONS (19)
  - Emphysema [Not Recovered/Not Resolved]
  - Low turnover osteopathy [Unknown]
  - Bone loss [Unknown]
  - Femur fracture [Unknown]
  - Osteonecrosis of jaw [Unknown]
  - Periodontal disease [Unknown]
  - Vitamin D deficiency [Unknown]
  - Tooth infection [Not Recovered/Not Resolved]
  - Spinal osteoarthritis [Unknown]
  - Tooth loss [Unknown]
  - Macrognathia [Unknown]
  - Leukoplakia [Unknown]
  - Paraesthesia oral [Recovering/Resolving]
  - Tooth disorder [Unknown]
  - Periostitis [Unknown]
  - Skin cancer [Unknown]
  - Dental caries [Unknown]
  - Dyspnoea exertional [Recovered/Resolved]
  - Osteomyelitis [Recovered/Resolved]

NARRATIVE: CASE EVENT DATE: 20011030
